FAERS Safety Report 4406602-0 (Version None)
Quarter: 2004Q3

REPORT INFORMATION
  Report Type: 
  Country: None (occurrence: None)
  Receive Date: 20040723
  Receipt Date: 20040713
  Transmission Date: 20050211
  Serious: Yes (Hospitalization)
  Sender: FDA-Public Use
  Company Number: FI-GLAXOSMITHKLINE-B0339543A

PATIENT
  Age: 61 Year
  Sex: Male

DRUGS (11)
  1. SERETIDE [Suspect]
     Route: 055
     Dates: start: 20031113
  2. KALETRA [Suspect]
     Indication: HIV INFECTION
     Route: 048
     Dates: start: 20030710, end: 20040318
  3. PREDNISONE [Concomitant]
     Indication: SARCOIDOSIS
     Dosage: 15MG PER DAY
     Route: 048
     Dates: start: 20030902, end: 20040502
  4. COMBIVIR [Concomitant]
     Indication: HIV INFECTION
     Dosage: 2TAB PER DAY
     Route: 048
     Dates: start: 20010101
  5. DIFLUCAN [Concomitant]
     Indication: ORAL CANDIDIASIS
     Dosage: 100MG PER DAY
     Route: 048
     Dates: start: 20031218, end: 20040214
  6. RISEDRONATE [Concomitant]
  7. CALCIUM SUPPLEMENT [Concomitant]
  8. VITAMIN D [Concomitant]
  9. ENFUVIRTIDE [Concomitant]
  10. TERBUTALINE [Concomitant]
  11. ZOPICLONE [Concomitant]

REACTIONS (5)
  - ALANINE AMINOTRANSFERASE INCREASED [None]
  - BACK PAIN [None]
  - DRUG INTERACTION [None]
  - NAUSEA [None]
  - SPINAL COMPRESSION FRACTURE [None]
